FAERS Safety Report 16497625 (Version 1)
Quarter: 2019Q2

REPORT INFORMATION
  Report Type: Report from Study
  Country: GB (occurrence: GB)
  Receive Date: 20190628
  Receipt Date: 20190628
  Transmission Date: 20190711
  Serious: Yes (Hospitalization, Other)
  Sender: FDA-Public Use
  Company Number: GB-JNJFOC-20190433394

PATIENT
  Age: 75 Year
  Sex: Female

DRUGS (1)
  1. STELARA [Suspect]
     Active Substance: USTEKINUMAB
     Indication: CROHN^S DISEASE
     Route: 058
     Dates: start: 201809

REACTIONS (11)
  - Bladder pain [Unknown]
  - Vomiting [Unknown]
  - Ileectomy [Unknown]
  - Somnolence [Unknown]
  - Abdominal distension [Unknown]
  - Decreased appetite [Unknown]
  - Crohn^s disease [Unknown]
  - Colectomy [Unknown]
  - Mineral supplementation [Unknown]
  - Drug ineffective [Unknown]
  - Nausea [Unknown]

NARRATIVE: CASE EVENT DATE: 2018
